FAERS Safety Report 24843319 (Version 1)
Quarter: 2025Q1

REPORT INFORMATION
  Report Type: Spontaneous
  Country: NL (occurrence: NL)
  Receive Date: 20250115
  Receipt Date: 20250115
  Transmission Date: 20250408
  Serious: Yes (Other)
  Sender: ALKEM
  Company Number: NL-ALKEM LABORATORIES LIMITED-NL-ALKEM-2024-14834

PATIENT
  Sex: Female

DRUGS (2)
  1. METOPROLOL SUCCINATE [Suspect]
     Active Substance: METOPROLOL SUCCINATE
     Indication: Aortic disorder
     Route: 065
  2. METOPROLOL SUCCINATE [Suspect]
     Active Substance: METOPROLOL SUCCINATE
     Indication: Marfan^s syndrome

REACTIONS (1)
  - Exposure during pregnancy [Unknown]
